FAERS Safety Report 20453132 (Version 2)
Quarter: 2022Q1

REPORT INFORMATION
  Report Type: Report from Study
  Country: US (occurrence: US)
  Receive Date: 20220210
  Receipt Date: 20220214
  Transmission Date: 20220423
  Serious: No
  Sender: FDA-Public Use
  Company Number: US-NOVARTISTESTPH-NVSC2022US028628

PATIENT
  Sex: Male

DRUGS (1)
  1. ENTRESTO [Suspect]
     Active Substance: SACUBITRIL\VALSARTAN
     Indication: Product used for unknown indication
     Dosage: 24/26 MG, BID
     Route: 065

REACTIONS (9)
  - Confusional state [Unknown]
  - Depression [Unknown]
  - Vision blurred [Unknown]
  - Amnesia [Unknown]
  - Back pain [Unknown]
  - Dyspnoea [Unknown]
  - Throat clearing [Unknown]
  - Productive cough [Unknown]
  - Dizziness [Unknown]
